FAERS Safety Report 9551727 (Version 1)
Quarter: 2013Q3

REPORT INFORMATION
  Report Type: Spontaneous
  Country: US (occurrence: None)
  Receive Date: 20130724
  Receipt Date: 20130724
  Transmission Date: 20140515
  Serious: Yes (Hospitalization, Other)
  Sender: FDA-Public Use
  Company Number: PHEH2012US010651

PATIENT
  Age: 84 Year
  Sex: Male

DRUGS (1)
  1. GLEEVEC [Suspect]
     Indication: CHRONIC MYELOID LEUKAEMIA
     Route: 048
     Dates: start: 2004

REACTIONS (5)
  - Clostridium difficile infection [None]
  - Myocardial infarction [None]
  - Thrombosis [None]
  - Pneumonia [None]
  - Dehydration [None]
